FAERS Safety Report 24966906 (Version 1)
Quarter: 2025Q1

REPORT INFORMATION
  Report Type: Spontaneous
  Country: RU (occurrence: RU)
  Receive Date: 20250213
  Receipt Date: 20250213
  Transmission Date: 20250409
  Serious: Yes (Other)
  Sender: ANI
  Company Number: RU-ANIPHARMA-2025-RU-000004

PATIENT
  Sex: Female

DRUGS (1)
  1. ARIMIDEX [Suspect]
     Active Substance: ANASTROZOLE
     Indication: Product used for unknown indication
     Route: 048

REACTIONS (5)
  - Hypercholesterolaemia [Unknown]
  - Eye disorder [Unknown]
  - Carotid artery disease [Unknown]
  - Platelet count increased [Unknown]
  - General physical health deterioration [Unknown]
